FAERS Safety Report 4353088-0 (Version None)
Quarter: 2004Q2

REPORT INFORMATION
  Report Type: 
  Country: None (occurrence: None)
  Receive Date: 20040430
  Receipt Date: 20040308
  Transmission Date: 20050107
  Serious: No
  Sender: FDA-Public Use
  Company Number: 204880

PATIENT
  Age: 56 Year
  Sex: Female
  Weight: 108.8 kg

DRUGS (4)
  1. XOLAIR [Suspect]
     Indication: ASTHMA
     Dosage: 300 MG, Q2W, SUBCUTANEOUS
     Route: 058
     Dates: start: 20040209
  2. ALBUTEROL INHALATION SOLUTION (ALBUTEROL, ALBUTEROL SULFATE) [Concomitant]
  3. TYLENOL #3 (UNITED STATES) (CODEINE PHOSPHATE, ACETAMINOPHEN) [Concomitant]
  4. ADVAIR DISKUS [Concomitant]

REACTIONS (2)
  - INJECTION SITE ERYTHEMA [None]
  - INJECTION SITE PAIN [None]
